FAERS Safety Report 8925306 (Version 1)
Quarter: 2012Q4

REPORT INFORMATION
  Report Type: 
  Country: GB (occurrence: GB)
  Receive Date: 20121126
  Receipt Date: 20121126
  Transmission Date: 20130627
  Serious: Yes (Hospitalization)
  Sender: FDA-Public Use
  Company Number: GB-PFIZER INC-2012294013

PATIENT
  Age: 55 Year
  Sex: Female
  Weight: 88.2 kg

DRUGS (9)
  1. GENOTROPIN [Suspect]
     Dosage: 0.6 mg, 1x/day,7 injections/week.
     Route: 058
     Dates: start: 20041208
  2. DESMOPRESSIN [Concomitant]
     Indication: ADH DECREASED
     Dosage: UNK
     Dates: start: 19991015
  3. HYDROCORTISONE [Concomitant]
     Indication: ACTH DECREASED
     Dosage: UNK
     Dates: start: 19991015
  4. THYROXINE [Concomitant]
     Indication: HYPOTHYROIDISM
     Dosage: UNK
     Dates: start: 19991015
  5. TIBOLONE [Concomitant]
     Indication: LUTEINIZING HORMONE DEFICIENCY
     Dosage: UNK
     Dates: start: 19991015
  6. TIBOLONE [Concomitant]
     Indication: FOLLICLE-STIMULATING HORMONE DEFICIENCY
  7. TIBOLONE [Concomitant]
     Indication: OVARIAN DISORDER
  8. TIBOLONE [Concomitant]
     Indication: HYPOGONADISM
  9. ORLISTAT [Concomitant]
     Indication: OBESITY
     Dosage: UNK
     Dates: start: 20021101

REACTIONS (1)
  - Varicose vein [Unknown]
